FAERS Safety Report 11047578 (Version 1)
Quarter: 2015Q2

REPORT INFORMATION
  Report Type: Spontaneous
  Country: US (occurrence: US)
  Receive Date: 20150420
  Receipt Date: 20150420
  Transmission Date: 20150821
  Serious: Yes (Other)
  Sender: FDA-Public Use
  Company Number: US-ACTAVIS-2015-08154

PATIENT
  Sex: Male

DRUGS (1)
  1. SILDENAFIL CITRATE (AGPTC) [Suspect]
     Active Substance: SILDENAFIL CITRATE
     Indication: PRODUCT USED FOR UNKNOWN INDICATION
     Dosage: UNK UNK, UNKNOWN
     Route: 065

REACTIONS (5)
  - Muscle spasms [Unknown]
  - Pain [Unknown]
  - Vision blurred [Unknown]
  - Tinnitus [Unknown]
  - Myalgia [Unknown]
